FAERS Safety Report 5564518-0 (Version None)
Quarter: 2007Q4

REPORT INFORMATION
  Report Type: 
  Country: None (occurrence: None)
  Receive Date: 20071212
  Receipt Date: 20071206
  Transmission Date: 20080405
  Serious: Yes (Hospitalization)
  Sender: FDA-Public Use
  Company Number: TAP2007Q01592

PATIENT
  Age: 88 Year
  Sex: Male

DRUGS (13)
  1. LUPRON DEPOT-4 [Suspect]
     Indication: PROSTATE CANCER
     Dosage: 30 MG, 1 IN 4 M, INTRAMUSCULAR
     Route: 030
     Dates: start: 20070425
  2. CELEXA(CITALOPRAM HYDROBROMIDE) (30 MILLIGRAM) [Concomitant]
  3. DILTIAZEM (DILTIAZEM) (120 MILLIGRAM) [Concomitant]
  4. FUROSEMIDE [Concomitant]
  5. CELEXA [Concomitant]
  6. DILTIAZEM [Concomitant]
  7. FUROSEMIDE [Concomitant]
  8. GALANTAMINE HYDROBROMIDE [Concomitant]
  9. HYDROCHLOROTHIAZIDE [Concomitant]
  10. LEVOTHYROXINE SODIUM [Concomitant]
  11. SLOW-K [Concomitant]
  12. TRAZODONE HCL [Concomitant]
  13. E YE DROPS (TETRYZOLINE HYDROCHLORIDE) [Concomitant]

REACTIONS (6)
  - DYSPNOEA [None]
  - HEPATIC FAILURE [None]
  - HEPATIC STEATOSIS [None]
  - HEPATIC VEIN THROMBOSIS [None]
  - OEDEMA PERIPHERAL [None]
  - PULMONARY OEDEMA [None]
